FAERS Safety Report 5577620-4 (Version None)
Quarter: 2007Q4

REPORT INFORMATION
  Report Type: 
  Country: None (occurrence: None)
  Receive Date: 20071231
  Receipt Date: 20071221
  Transmission Date: 20080405
  Serious: Yes (Hospitalization)
  Sender: FDA-Public Use
  Company Number: PHFR2007GB03489

PATIENT
  Age: 80 Year
  Sex: Male

DRUGS (4)
  1. ZOMETA [Suspect]
     Indication: PROSTATE CANCER
     Dosage: 4 MG, QMO
     Route: 042
     Dates: start: 20050401, end: 20071002
  2. STILBOESTROL [Concomitant]
     Indication: PROSTATE CANCER
     Route: 048
  3. DEXAMETHASONE TAB [Concomitant]
     Indication: PROSTATE CANCER
     Route: 048
  4. ADCAL-D3 [Concomitant]
     Indication: HYPOCALCAEMIA
     Route: 048

REACTIONS (6)
  - CONFUSIONAL STATE [None]
  - DYSARTHRIA [None]
  - DYSPHASIA [None]
  - GRAND MAL CONVULSION [None]
  - HYPOCALCAEMIA [None]
  - HYPOPHOSPHATAEMIA [None]
